FAERS Safety Report 11534208 (Version 1)
Quarter: 2015Q3

REPORT INFORMATION
  Report Type: Spontaneous
  Country: US (occurrence: None)
  Receive Date: 20150921
  Receipt Date: 20150921
  Transmission Date: 20151125
  Serious: Yes (Death)
  Sender: FDA-Public Use
  Company Number: None

PATIENT
  Age: 10 Year
  Sex: Female
  Weight: 28.1 kg

DRUGS (5)
  1. DEXAMETHASONE. [Suspect]
     Active Substance: DEXAMETHASONE
     Dates: end: 20150903
  2. METHOTREXATE [Suspect]
     Active Substance: METHOTREXATE
     Dates: start: 20150830, end: 20150908
  3. VINCRISTINE SULFATE. [Suspect]
     Active Substance: VINCRISTINE SULFATE
     Dates: end: 20150908
  4. ONCASPAR [Suspect]
     Active Substance: PEGASPARGASE
     Dates: end: 20150901
  5. MITOXANTRONE HYDROCHLORIDE. [Suspect]
     Active Substance: MITOXANTRONE HYDROCHLORIDE
     Dates: end: 20150831

REACTIONS (3)
  - Vomiting [None]
  - Hypophagia [None]
  - Fatigue [None]

NARRATIVE: CASE EVENT DATE: 20150912
